FAERS Safety Report 5230242-7 (Version None)
Quarter: 2007Q1

REPORT INFORMATION
  Report Type: 
  Country: None (occurrence: None)
  Receive Date: 20070206
  Receipt Date: 20061018
  Transmission Date: 20070707
  Serious: No
  Sender: FDA-Public Use
  Company Number: US-GLAXOSMITHKLINE-A0624072A

PATIENT
  Age: 76 Year
  Sex: Male

DRUGS (5)
  1. PAXIL CR [Suspect]
     Indication: DEPRESSION
     Dosage: 37.5MG PER DAY
     Route: 048
     Dates: start: 20061001
  2. BENICAR HCT [Concomitant]
  3. FLOMAX [Concomitant]
  4. VITAMIN E [Concomitant]
  5. CALCIUM [Concomitant]

REACTIONS (3)
  - DIZZINESS [None]
  - FATIGUE [None]
  - IRRITABILITY [None]
